FAERS Safety Report 20992607 (Version 3)
Quarter: 2022Q3

REPORT INFORMATION
  Report Type: Other
  Country: US (occurrence: None)
  Receive Date: 20220622
  Receipt Date: 20220927
  Transmission Date: 20221027
  Serious: Yes (Hospitalization)
  Sender: FDA-Public Use
  Company Number: US-ROCHE-3116865

PATIENT
  Age: 64 Year
  Sex: Female
  Weight: 63.560 kg

DRUGS (4)
  1. OCREVUS [Suspect]
     Active Substance: OCRELIZUMAB
     Indication: Relapsing multiple sclerosis
     Dosage: INFUSE 600MG INTRAVENOUSLY EVERY 6 MONTH(S)
     Route: 042
  2. LYRICA [Concomitant]
     Active Substance: PREGABALIN
     Indication: Neuropathy peripheral
     Route: 048
  3. ZINC [Concomitant]
     Active Substance: ZINC
     Indication: COVID-19
     Route: 048
  4. FLAVOXATE [Concomitant]
     Active Substance: FLAVOXATE
     Indication: Muscle spasms
     Route: 048

REACTIONS (6)
  - Fractured coccyx [Unknown]
  - Osteomyelitis [Unknown]
  - Wound [Recovering/Resolving]
  - COVID-19 [Recovered/Resolved]
  - Hypertonic bladder [Recovered/Resolved]
  - Gait inability [Not Recovered/Not Resolved]

NARRATIVE: CASE EVENT DATE: 20211201
